FAERS Safety Report 5018073-4 (Version None)
Quarter: 2006Q2

REPORT INFORMATION
  Report Type: 
  Country: None (occurrence: None)
  Receive Date: 20060605
  Receipt Date: 20060504
  Transmission Date: 20061013
  Serious: Yes (Other)
  Sender: FDA-Public Use
  Company Number: PHBS2006AT06587

PATIENT
  Age: 4 Year
  Sex: Female

DRUGS (2)
  1. ELIDEL [Suspect]
     Indication: DERMATITIS ATOPIC
     Dosage: UNK, QW3
     Route: 061
     Dates: start: 20050101, end: 20051201
  2. NHL-PFN 95 [Concomitant]

REACTIONS (1)
  - PRECURSOR B-LYMPHOBLASTIC LYMPHOMA [None]
